FAERS Safety Report 11650280 (Version 1)
Quarter: 2015Q4

REPORT INFORMATION
  Report Type: Spontaneous
  Country: US (occurrence: US)
  Receive Date: 20151021
  Receipt Date: 20151021
  Transmission Date: 20160304
  Serious: No
  Sender: FDA-Public Use
  Company Number: US-BAYER-2015-440439

PATIENT
  Age: 57 Year
  Sex: Male
  Weight: 104.31 kg

DRUGS (5)
  1. CLARITIN REDITABS [Suspect]
     Active Substance: LORATADINE
     Dosage: 1 DF, QD
     Route: 048
     Dates: start: 20150928, end: 20151004
  2. MUCINEX [Suspect]
     Active Substance: GUAIFENESIN
  3. VICKS NYQUIL [Suspect]
     Active Substance: ACETAMINOPHEN\DEXTROMETHORPHAN HYDROBROMIDE\DOXYLAMINE SUCCINATE
  4. CLARITIN [Suspect]
     Active Substance: LORATADINE
     Dosage: 1 DF, QD
     Route: 048
     Dates: start: 20151006
  5. LEVOFLOXACIN. [Concomitant]
     Active Substance: LEVOFLOXACIN

REACTIONS (9)
  - Herpes zoster [Unknown]
  - Product use issue [None]
  - Rash [Recovered/Resolved]
  - Off label use [None]
  - Rash [Not Recovered/Not Resolved]
  - Product use issue [None]
  - Pruritus [Not Recovered/Not Resolved]
  - Rash [Not Recovered/Not Resolved]
  - Therapeutic response unexpected [None]

NARRATIVE: CASE EVENT DATE: 20151004
